FAERS Safety Report 20462279 (Version 1)
Quarter: 2022Q1

REPORT INFORMATION
  Report Type: Other
  Country: US (occurrence: None)
  Receive Date: 20220211
  Receipt Date: 20220211
  Transmission Date: 20220423
  Serious: No
  Sender: FDA-Public Use
  Company Number: US-ROCHE-3021489

PATIENT
  Sex: Female

DRUGS (1)
  1. OCREVUS [Suspect]
     Active Substance: OCRELIZUMAB
     Indication: Relapsing-remitting multiple sclerosis
     Dosage: DATE OF TREATMENTS: 23/JUN/2020, 07/JUL/2020, 11/DEC/2020, 14/JUL/2021, 17/JAN/2022
     Route: 042
     Dates: start: 20200623

REACTIONS (1)
  - COVID-19 [Recovered/Resolved]
